FAERS Safety Report 7956938-1 (Version None)
Quarter: 2011Q4

REPORT INFORMATION
  Report Type: 
  Country: None (occurrence: None)
  Receive Date: 20111205
  Receipt Date: 20111205
  Transmission Date: 20120403
  Serious: Yes (Other)
  Sender: FDA-Public Use
  Company Number: None

PATIENT
  Age: 86 Year
  Sex: Female
  Weight: 63.502 kg

DRUGS (2)
  1. PRADAXA [Suspect]
     Indication: ATRIAL FIBRILLATION
     Dosage: 150 MG
     Route: 048
     Dates: start: 20110915, end: 20111124
  2. PRADAXA [Suspect]
     Indication: THROMBOSIS PROPHYLAXIS
     Dosage: 150 MG
     Route: 048
     Dates: start: 20110915, end: 20111124

REACTIONS (5)
  - OEDEMA PERIPHERAL [None]
  - VISUAL IMPAIRMENT [None]
  - EPISTAXIS [None]
  - ABDOMINAL DISCOMFORT [None]
  - MENTAL IMPAIRMENT [None]
